FAERS Safety Report 15230083 (Version 1)
Quarter: 2018Q3

REPORT INFORMATION
  Report Type: Report from Study
  Country: IT (occurrence: IT)
  Receive Date: 20180802
  Receipt Date: 20180802
  Transmission Date: 20181010
  Serious: Yes (Hospitalization)
  Sender: FDA-Public Use
  Company Number: IT-TEVA-2018-IT-934131

PATIENT
  Age: 88 Year
  Sex: Female

DRUGS (8)
  1. CORLENTOR [Concomitant]
     Active Substance: IVABRADINE HYDROCHLORIDE
  2. TAVOR [Concomitant]
     Route: 065
  3. PANTOPRAZOLE [Concomitant]
     Active Substance: PANTOPRAZOLE
     Route: 065
  4. RAMIPRIL. [Suspect]
     Active Substance: RAMIPRIL
     Indication: HYPERTENSION
     Dosage: 2.5 MILLIGRAM DAILY;
     Route: 048
  5. LASIX [Concomitant]
     Active Substance: FUROSEMIDE
  6. MINITRAN 5 MG/24 ORE CEROTTI TRANSDERMICI [Concomitant]
  7. ROSUVASTATIN CALCIUM. [Concomitant]
     Active Substance: ROSUVASTATIN CALCIUM
  8. LIXIANA 60 MG FILM?COATED TABLETS [Concomitant]
     Route: 065

REACTIONS (6)
  - Asthenia [Recovering/Resolving]
  - Chest pain [Recovering/Resolving]
  - Headache [Recovering/Resolving]
  - Malaise [Recovering/Resolving]
  - Dizziness [Recovering/Resolving]
  - Vertigo [Recovering/Resolving]

NARRATIVE: CASE EVENT DATE: 20180624
